FAERS Safety Report 16846878 (Version 17)
Quarter: 2023Q1

REPORT INFORMATION
  Report Type: Report from Study
  Country: GB (occurrence: GB)
  Receive Date: 20190924
  Receipt Date: 20230213
  Transmission Date: 20230418
  Serious: Yes (Death, Life-Threatening, Hospitalization, Disabling, Other)
  Sender: FDA-Public Use
  Company Number: GB-NOVPHSZ-PHHY2019GB035822

PATIENT
  Age: 65 Year
  Sex: Female
  Weight: 59 kg

DRUGS (29)
  1. LANSOPRAZOLE [Suspect]
     Active Substance: LANSOPRAZOLE
     Indication: Oesophagitis ulcerative
     Dosage: LANSOPRAZOLE UNKNOWN
     Route: 048
  2. LANSOPRAZOLE [Suspect]
     Active Substance: LANSOPRAZOLE
     Indication: Gastrooesophageal reflux disease
  3. ZOLEDRONIC ACID [Suspect]
     Active Substance: ZOLEDRONIC ACID
     Indication: Product used for unknown indication
     Dosage: UNK
     Route: 065
  4. ERELZI [Suspect]
     Active Substance: ETANERCEPT-SZZS
     Indication: Rheumatoid arthritis
     Dosage: 50 MG, QW, ETANERCEPT 50 MG A WEEK
     Route: 058
     Dates: start: 201805, end: 20190422
  5. ERELZI [Suspect]
     Active Substance: ETANERCEPT-SZZS
     Dosage: 50 MILLIGRAM, QW (50 MG, QW)
     Route: 058
     Dates: start: 20190430, end: 20191030
  6. ERELZI [Suspect]
     Active Substance: ETANERCEPT-SZZS
     Dosage: 50 MG, QW
     Route: 058
     Dates: start: 20191105
  7. ERELZI [Suspect]
     Active Substance: ETANERCEPT-SZZS
     Dosage: 50 MG, QW
     Route: 058
  8. ERELZI [Suspect]
     Active Substance: ETANERCEPT-SZZS
     Dosage: UNK
     Route: 065
  9. TRIENTINE [Concomitant]
     Active Substance: TRIENTINE
     Indication: Hepato-lenticular degeneration
     Dosage: TRIENTINE UNKNOWN
     Route: 048
     Dates: end: 20190402
  10. TRIENTINE [Concomitant]
     Active Substance: TRIENTINE
     Dosage: UNK
     Route: 065
  11. RANITIDINE [Concomitant]
     Active Substance: RANITIDINE
     Indication: Oesophagitis ulcerative
     Dosage: UNK
     Route: 048
     Dates: start: 20181213, end: 20191027
  12. RANITIDINE [Concomitant]
     Active Substance: RANITIDINE
     Indication: Chronic obstructive pulmonary disease
     Dosage: UNK
     Route: 048
     Dates: start: 20191023, end: 20191027
  13. BISOPROLOL [Concomitant]
     Active Substance: BISOPROLOL
     Indication: Myocardial ischaemia
     Dosage: BISOPROLOL UNKNOWN
     Route: 048
     Dates: start: 2012
  14. ASPIRIN [Concomitant]
     Active Substance: ASPIRIN
     Indication: Myocardial ischaemia
     Dosage: ACETYLSALICYLIC ACID UNKNOWN
     Route: 048
     Dates: start: 2012
  15. PREDNISOLONE [Concomitant]
     Active Substance: PREDNISOLONE
     Indication: Chronic obstructive pulmonary disease
     Dosage: UNK
     Route: 048
  16. PREDNISOLONE [Concomitant]
     Active Substance: PREDNISOLONE
     Dosage: PREDNISOLONE UNKNOWN
     Route: 048
     Dates: start: 20191023, end: 20191027
  17. AMITRIPTYLINE [Concomitant]
     Active Substance: AMITRIPTYLINE
     Indication: Mania
     Dosage: AMITRIPTYLINE UNKNOWN
     Route: 048
  18. CALCIUM CARBONATE [Concomitant]
     Active Substance: CALCIUM CARBONATE
     Indication: Osteoarthritis
     Dosage: CALCIUM CARBONATE UNKNOWN
     Route: 048
  19. RAMIPRIL [Concomitant]
     Active Substance: RAMIPRIL
     Indication: Hypertension
     Dosage: RAMIPRIL UNKNOWN
     Route: 048
     Dates: end: 20181231
  20. ISOSORBIDE MONONITRATE [Concomitant]
     Active Substance: ISOSORBIDE MONONITRATE
     Indication: Myocardial ischaemia
     Dosage: ISOSORBIDE MONONITRATE UNKNOWN
     Route: 048
     Dates: start: 20190402
  21. ISOSORBIDE MONONITRATE [Concomitant]
     Active Substance: ISOSORBIDE MONONITRATE
     Dosage: UNK
     Route: 048
     Dates: end: 20190402
  22. BECLOMETHASONE\FORMOTEROL [Concomitant]
     Active Substance: BECLOMETHASONE\FORMOTEROL
     Indication: Chronic obstructive pulmonary disease
     Dosage: BECLOMETASONE / FORMOTEROL UNKNOWN
     Route: 065
  23. ENBREL [Concomitant]
     Active Substance: ETANERCEPT
     Indication: Rheumatoid arthritis
     Dosage: UNK
     Route: 058
     Dates: start: 2010, end: 201805
  24. ACETAMINOPHEN [Concomitant]
     Active Substance: ACETAMINOPHEN
     Indication: Rheumatoid arthritis
     Dosage: PARACETAMOL UNKNOWN
     Route: 048
  25. ATORVASTATIN [Concomitant]
     Active Substance: ATORVASTATIN
     Indication: Prophylaxis
     Dosage: ATORVASTATIN UNKNOWN
     Route: 048
  26. VENTOLIN [Concomitant]
     Active Substance: ALBUTEROL SULFATE
     Indication: Chronic obstructive pulmonary disease
     Dosage: UNK
     Route: 048
     Dates: start: 20150519
  27. AMILORIDE [Concomitant]
     Active Substance: AMILORIDE
     Indication: Hypertension
     Dosage: UNK
     Route: 048
     Dates: start: 20191105
  28. TIOTROPIUM BROMIDE [Concomitant]
     Active Substance: TIOTROPIUM BROMIDE
     Indication: Chronic obstructive pulmonary disease
     Dosage: TIOTROPIOUM BROMIDE UNKNOWN
     Route: 065
  29. ZOLEDRONIC ACID [Concomitant]
     Active Substance: ZOLEDRONIC ACID
     Indication: Osteoporosis
     Dosage: ZOLENDRONIC ACID UNKNOWN
     Route: 042

REACTIONS (24)
  - Death [Fatal]
  - Intestinal ischaemia [Fatal]
  - Anxiety [Unknown]
  - Depressed mood [Unknown]
  - Injection site bruising [Unknown]
  - Hepatic steatosis [Not Recovered/Not Resolved]
  - Gait disturbance [Unknown]
  - Tenderness [Unknown]
  - Joint swelling [Unknown]
  - Gastric ulcer [Not Recovered/Not Resolved]
  - Acute kidney injury [Recovered/Resolved]
  - Fall [Recovered/Resolved]
  - Chronic obstructive pulmonary disease [Recovered/Resolved]
  - Corneal abrasion [Recovered/Resolved]
  - Burning sensation [Unknown]
  - Pain [Not Recovered/Not Resolved]
  - Lower respiratory tract infection [Recovered/Resolved]
  - Constipation [Not Recovered/Not Resolved]
  - Hypomagnesaemia [Not Recovered/Not Resolved]
  - Diarrhoea [Unknown]
  - Confusional state [Unknown]
  - Vomiting [Not Recovered/Not Resolved]
  - Arthralgia [Unknown]
  - Abdominal pain [Recovered/Resolved with Sequelae]

NARRATIVE: CASE EVENT DATE: 20180606
